FAERS Safety Report 18055149 (Version 1)
Quarter: 2020Q3

REPORT INFORMATION
  Report Type: Spontaneous
  Country: BR (occurrence: BR)
  Receive Date: 20200722
  Receipt Date: 20200722
  Transmission Date: 20201103
  Serious: Yes (Other)
  Sender: FDA-Public Use
  Company Number: BR-SHIRE-BR202021495

PATIENT

DRUGS (1)
  1. HYQVIA [Suspect]
     Active Substance: HUMAN IMMUNOGLOBULIN G\HYALURONIDASE RECOMBINANT HUMAN
     Indication: IMMUNOGLOBULINS ABNORMAL
     Dosage: 30 GRAM, 1X/2WKS
     Route: 065
     Dates: start: 20200617

REACTIONS (10)
  - Pneumonia [Unknown]
  - Chest pain [Unknown]
  - Inappropriate schedule of product administration [Unknown]
  - Anosmia [Unknown]
  - Rhinorrhoea [Unknown]
  - Ageusia [Unknown]
  - Taste disorder [Unknown]
  - Cough [Unknown]
  - Suspected COVID-19 [Unknown]
  - Fatigue [Unknown]

NARRATIVE: CASE EVENT DATE: 20200701
